FAERS Safety Report 7769570-X (Version None)
Quarter: 2011Q3

REPORT INFORMATION
  Report Type: 
  Country: None (occurrence: None)
  Receive Date: 20110922
  Receipt Date: 20100106
  Transmission Date: 20111222
  Serious: No
  Sender: FDA-Public Use
  Company Number: US-ASTRAZENECA-2008UW12907

PATIENT
  Age: 628 Month
  Sex: Female
  Weight: 127 kg

DRUGS (5)
  1. SEROQUEL [Suspect]
     Indication: BIPOLAR DISORDER
     Dosage: 200 MG THEN 300 MG AND NOW 100 MG
     Route: 048
     Dates: start: 20070316
  2. ZOLOFT [Concomitant]
     Dates: start: 20070829
  3. ZOLOFT [Concomitant]
     Dates: start: 20070101
  4. SEROQUEL [Suspect]
     Route: 048
     Dates: start: 20070829
  5. LITHIUM CARBONATE [Concomitant]
     Dates: start: 20070829

REACTIONS (6)
  - HYPERLIPIDAEMIA [None]
  - RENAL FAILURE CHRONIC [None]
  - OBESITY [None]
  - AMNESIA [None]
  - BLOOD CHOLESTEROL INCREASED [None]
  - TYPE 2 DIABETES MELLITUS [None]
